FAERS Safety Report 5565671-5 (Version None)
Quarter: 2007Q4

REPORT INFORMATION
  Report Type: 
  Country: None (occurrence: None)
  Receive Date: 20071218
  Receipt Date: 20071204
  Transmission Date: 20080405
  Serious: Yes (Hospitalization, Other)
  Sender: FDA-Public Use
  Company Number: GB-RANBAXY-2007RR-11899

PATIENT

DRUGS (6)
  1. ENALAPRIL MALEATE TABLETS 10MG [Suspect]
     Dosage: 30 MG, UNK
     Route: 048
     Dates: end: 20071122
  2. METFORMIN 500MG TABLETS [Suspect]
     Dosage: 1 G, UNK
     Route: 048
     Dates: end: 20071122
  3. CARVEDILOL [Concomitant]
     Dosage: 12.5 MG, UNK
     Route: 048
  4. FUROSEMIDE TABLETS BP 40MG [Concomitant]
     Dosage: 40 MG, UNK
     Route: 048
  5. NICORANDIL [Concomitant]
     Dosage: 10 MG, UNK
     Route: 048
  6. WARFARIN SODIUM [Concomitant]
     Route: 048

REACTIONS (1)
  - RENAL FAILURE ACUTE [None]
